FAERS Safety Report 10086620 (Version 2)
Quarter: 2014Q2

REPORT INFORMATION
  Report Type: Spontaneous
  Country: US (occurrence: US)
  Receive Date: 20140418
  Receipt Date: 20140430
  Transmission Date: 20141212
  Serious: No
  Sender: FDA-Public Use
  Company Number: US-009507513-1404USA006996

PATIENT
  Age: 76 Year
  Sex: Female
  Weight: 61.68 kg

DRUGS (6)
  1. OXYTROL FOR WOMEN [Suspect]
     Indication: MICTURITION URGENCY
     Dosage: 1 DF, UNKNOWN
     Route: 062
     Dates: start: 20140320, end: 20140323
  2. OXYTROL FOR WOMEN [Suspect]
     Indication: POLLAKIURIA
  3. OXYTROL FOR WOMEN [Suspect]
     Indication: URINARY INCONTINENCE
  4. NEURONTIN [Concomitant]
     Indication: TORTICOLLIS
     Dosage: UNK, UNKNOWN
  5. LORTAB [Concomitant]
     Indication: CERVICAL SPINAL STENOSIS
     Dosage: UNK, UNKNOWN
  6. CALCIUM (UNSPECIFIED) (+) VITAMIN D (UNSPECIFIED) [Concomitant]
     Indication: OSTEOPOROSIS
     Dosage: UNK, UNKNOWN

REACTIONS (1)
  - Drug ineffective [Unknown]
